FAERS Safety Report 21561283 (Version 2)
Quarter: 2022Q4

REPORT INFORMATION
  Report Type: Spontaneous
  Country: CN (occurrence: CN)
  Receive Date: 20221107
  Receipt Date: 20221117
  Transmission Date: 20230113
  Serious: Yes (Life-Threatening)
  Sender: FDA-Public Use
  Company Number: CN-002147023-NVSC2022CN250167

PATIENT
  Age: 48 Year
  Sex: Male

DRUGS (2)
  1. TEGRETOL [Suspect]
     Active Substance: CARBAMAZEPINE
     Indication: Epilepsy
     Dosage: 0.2 G, QD
     Route: 048
     Dates: start: 20221015, end: 20221025
  2. GABAPENTIN [Concomitant]
     Active Substance: GABAPENTIN
     Indication: Product used for unknown indication
     Dosage: 0.3 G, TID
     Route: 045

REACTIONS (6)
  - Hepatic function abnormal [Recovering/Resolving]
  - Liver function test abnormal [Recovering/Resolving]
  - Hepatic failure [Recovering/Resolving]
  - Hepatitis [Recovering/Resolving]
  - Cholestasis [Recovering/Resolving]
  - Jaundice hepatocellular [Recovering/Resolving]

NARRATIVE: CASE EVENT DATE: 20221017
